FAERS Safety Report 8103015-5 (Version None)
Quarter: 2012Q1

REPORT INFORMATION
  Report Type: 
  Country: None (occurrence: None)
  Receive Date: 20120201
  Receipt Date: 20120201
  Transmission Date: 20120608
  Serious: Yes (Other)
  Sender: FDA-Public Use
  Company Number: None

PATIENT
  Age: 42 Year
  Sex: Female
  Weight: 142.88 kg

DRUGS (1)
  1. EXCEDRIN (MIGRAINE) [Suspect]
     Indication: MIGRAINE
     Dosage: 2 CAPLETS
     Dates: start: 20110730, end: 20120110

REACTIONS (8)
  - HYPERTENSION [None]
  - MEMORY IMPAIRMENT [None]
  - ABDOMINAL PAIN UPPER [None]
  - PETIT MAL EPILEPSY [None]
  - GASTROENTERITIS VIRAL [None]
  - EPISTAXIS [None]
  - PRODUCT QUALITY ISSUE [None]
  - VASCULAR RUPTURE [None]
